FAERS Safety Report 7942512-X (Version None)
Quarter: 2011Q4

REPORT INFORMATION
  Report Type: 
  Country: None (occurrence: None)
  Receive Date: 20111128
  Receipt Date: 20111118
  Transmission Date: 20120403
  Serious: Yes (Hospitalization)
  Sender: FDA-Public Use
  Company Number: JP-GLAXOSMITHKLINE-B0759983A

PATIENT
  Sex: Female

DRUGS (4)
  1. ARIXTRA [Suspect]
     Indication: THROMBOSIS PROPHYLAXIS
     Dosage: 2.5MG PER DAY
     Route: 058
     Dates: start: 20111009, end: 20111015
  2. CEFAZOLIN [Concomitant]
     Dosage: 2G PER DAY
     Dates: start: 20111006, end: 20111008
  3. FLOMOX [Concomitant]
     Indication: PYREXIA
     Dates: start: 20111019, end: 20111021
  4. LEVOFLOXACIN [Concomitant]
     Route: 048

REACTIONS (15)
  - INFUSION SITE INFLAMMATION [None]
  - PROTEIN TOTAL DECREASED [None]
  - C-REACTIVE PROTEIN INCREASED [None]
  - PYREXIA [None]
  - INFUSION SITE MASS [None]
  - RED BLOOD CELL COUNT DECREASED [None]
  - BREAST CANCER [None]
  - HAEMOGLOBIN DECREASED [None]
  - GAMMA-GLUTAMYLTRANSFERASE INCREASED [None]
  - BLOOD LACTATE DEHYDROGENASE INCREASED [None]
  - BLOOD UREA INCREASED [None]
  - BLOOD SODIUM DECREASED [None]
  - HAEMATOCRIT DECREASED [None]
  - BLOOD ALBUMIN DECREASED [None]
  - BLOOD ALKALINE PHOSPHATASE INCREASED [None]
